FAERS Safety Report 6397881-1 (Version None)
Quarter: 2009Q4

REPORT INFORMATION
  Report Type: 
  Country: None (occurrence: None)
  Receive Date: 20091013
  Receipt Date: 20091006
  Transmission Date: 20100525
  Serious: Yes (Hospitalization)
  Sender: FDA-Public Use
  Company Number: US-BIOGENIDEC-2009BI032116

PATIENT
  Age: 60 Year
  Sex: Female
  Weight: 68 kg

DRUGS (4)
  1. AVONEX [Suspect]
     Indication: MULTIPLE SCLEROSIS
     Route: 030
     Dates: start: 19991001
  2. AVONEX [Suspect]
     Route: 030
     Dates: end: 20090901
  3. AVONEX [Suspect]
     Route: 030
     Dates: start: 20090901
  4. NAPROSYN [Concomitant]
     Indication: PREMEDICATION
     Route: 048

REACTIONS (7)
  - BLINDNESS [None]
  - FALL [None]
  - INFLUENZA LIKE ILLNESS [None]
  - LYME DISEASE [None]
  - MIGRAINE [None]
  - TREMOR [None]
  - UPPER LIMB FRACTURE [None]
